FAERS Safety Report 13893281 (Version 1)
Quarter: 2017Q3

REPORT INFORMATION
  Report Type: Spontaneous
  Country: US (occurrence: US)
  Receive Date: 20170822
  Receipt Date: 20170822
  Transmission Date: 20171127
  Serious: No
  Sender: FDA-Public Use
  Company Number: US-ROCHE-1460585

PATIENT
  Age: 24 Year
  Sex: Female

DRUGS (2)
  1. TAXOL [Concomitant]
     Active Substance: PACLITAXEL
  2. HERCEPTIN [Suspect]
     Active Substance: TRASTUZUMAB
     Indication: PRODUCT USED FOR UNKNOWN INDICATION
     Route: 065

REACTIONS (11)
  - Nausea [Unknown]
  - Bone pain [Unknown]
  - Epistaxis [Unknown]
  - Acne [Unknown]
  - Constipation [Unknown]
  - Abdominal distension [Unknown]
  - Oedema [Unknown]
  - Fatigue [Unknown]
  - Tinnitus [Unknown]
  - Diarrhoea [Unknown]
  - Alopecia [Unknown]
